FAERS Safety Report 9687758 (Version 1)
Quarter: 2013Q4

REPORT INFORMATION
  Report Type: Spontaneous
  Country: US (occurrence: US)
  Receive Date: 20131114
  Receipt Date: 20131114
  Transmission Date: 20140711
  Serious: No
  Sender: FDA-Public Use
  Company Number: US-PFIZER INC-2013325159

PATIENT
  Age: 54 Year
  Sex: Female
  Weight: 78.46 kg

DRUGS (5)
  1. LYRICA [Suspect]
     Indication: NEUROPATHY PERIPHERAL
     Dosage: 75 MG, 2X/DAY
     Route: 048
     Dates: start: 2013
  2. LYRICA [Suspect]
     Indication: PAIN
     Dosage: 150 MG, 2X/DAY (2CAPSULESOF 75MG TWO TIMES A DAY)
     Route: 048
  3. LYRICA [Suspect]
     Dosage: 225 MG (ONE CAPSULE OF PREGABALIN 75MG IN MORNING AND TWO CAPSULES AT NIGHT )
     Route: 048
     Dates: start: 2013
  4. LYRICA [Suspect]
     Dosage: 75 MG, 2X/DAY
     Route: 048
     Dates: start: 2013
  5. ALPRAZOLAM [Concomitant]
     Dosage: UNK

REACTIONS (2)
  - Drug intolerance [Unknown]
  - Somnolence [Unknown]
